FAERS Safety Report 18641149 (Version 1)
Quarter: 2020Q4

REPORT INFORMATION
  Report Type: Report from Study
  Country: ES (occurrence: ES)
  Receive Date: 20201221
  Receipt Date: 20201221
  Transmission Date: 20210114
  Serious: Yes (Hospitalization)
  Sender: FDA-Public Use
  Company Number: ES-TEVA-2020-ES-1859502

PATIENT
  Age: 21 Year
  Sex: Female

DRUGS (3)
  1. SEDOTIME 15 MG CAPSULAS DURAS [Suspect]
     Active Substance: KETAZOLAM
     Indication: SUICIDE ATTEMPT
     Dosage: 90 MG
     Route: 048
     Dates: start: 20201015
  2. FLUOXETINA [Suspect]
     Active Substance: FLUOXETINE HYDROCHLORIDE
     Indication: SUICIDE ATTEMPT
     Dosage: 80 MG
     Route: 048
     Dates: start: 20201015
  3. ZOLPIDEM [Suspect]
     Active Substance: ZOLPIDEM TARTRATE
     Indication: SUICIDE ATTEMPT
     Dosage: 80 MG
     Route: 048
     Dates: start: 20201015

REACTIONS (2)
  - Somnolence [Recovered/Resolved]
  - Intentional overdose [Recovered/Resolved]

NARRATIVE: CASE EVENT DATE: 20201015
